FAERS Safety Report 4403434-4 (Version None)
Quarter: 2004Q3

REPORT INFORMATION
  Report Type: 
  Country: None (occurrence: None)
  Receive Date: 20040720
  Receipt Date: 20040715
  Transmission Date: 20050211
  Serious: Yes (Other)
  Sender: FDA-Public Use
  Company Number: 200219555BWH

PATIENT
  Age: 22 Year
  Sex: Female
  Weight: 136.0791 kg

DRUGS (1)
  1. TRASYLOL [Suspect]
     Indication: HEART VALVE OPERATION
     Dosage: INTRAVENOUS
     Route: 042

REACTIONS (4)
  - ANAPHYLACTIC REACTION [None]
  - CARDIAC PROCEDURE COMPLICATION [None]
  - OXYGEN SATURATION DECREASED [None]
  - RESPIRATORY RATE INCREASED [None]
